FAERS Safety Report 5738090-6 (Version None)
Quarter: 2008Q2

REPORT INFORMATION
  Report Type: 
  Country: None (occurrence: None)
  Receive Date: 20080509
  Receipt Date: 20070608
  Transmission Date: 20081010
  Serious: Yes (Congenital Anomaly, Other)
  Sender: FDA-Public Use
  Company Number: PHEH2007US08607

PATIENT
  Sex: Male

DRUGS (1)
  1. TEGRETOL [Suspect]
     Dosage: TRANSPLACENTAL
     Route: 064

REACTIONS (3)
  - CONGENITAL MUSCULOSKELETAL ANOMALY [None]
  - FALL [None]
  - X-RAY ABNORMAL [None]
